FAERS Safety Report 8964087 (Version 1)
Quarter: 2012Q4

REPORT INFORMATION
  Report Type: 
  Country: US (occurrence: US)
  Receive Date: 20121213
  Receipt Date: 20121213
  Transmission Date: 20130627
  Serious: Yes (Hospitalization)
  Sender: FDA-Public Use
  Company Number: US-GLAXOSMITHKLINE-A1005280A

PATIENT
  Age: 38 Year
  Sex: Female

DRUGS (2)
  1. WELLBUTRIN [Suspect]
     Route: 065
  2. COPAXONE [Suspect]
     Indication: MULTIPLE SCLEROSIS
     Dosage: 20MG Unknown
     Route: 065
     Dates: start: 20121030

REACTIONS (2)
  - Loss of consciousness [Recovered/Resolved]
  - Tremor [Unknown]
